FAERS Safety Report 4559140-9 (Version None)
Quarter: 2005Q2

REPORT INFORMATION
  Report Type: 
  Country: None (occurrence: None)
  Receive Date: 20050121
  Receipt Date: 20050121
  Transmission Date: 20051028
  Serious: No
  Sender: FDA-Public Use
  Company Number: None

PATIENT
  Sex: Female

DRUGS (5)
  1. WARFARIN [Suspect]
  2. FRUSEMIDE [Suspect]
  3. FLECAINIDE ACETATE [Suspect]
  4. ALBUTEROL [Suspect]
  5. RAMIPRIL [Suspect]

REACTIONS (1)
  - HAEMORRHAGE [None]
